FAERS Safety Report 4502402-1 (Version None)
Quarter: 2004Q4

REPORT INFORMATION
  Report Type: 
  Country: None (occurrence: None)
  Receive Date: 20041110
  Receipt Date: 20041025
  Transmission Date: 20050328
  Serious: No
  Sender: FDA-Public Use
  Company Number: T04-GER-07239-01

PATIENT
  Age: 46 Year
  Sex: Female

DRUGS (3)
  1. CITALOPRAM HYDROBROMIDE [Suspect]
     Indication: MAJOR DEPRESSION
     Dosage: 20 MG QD PO
     Route: 048
     Dates: start: 20030130, end: 20030219
  2. TRIMIPRAMINE MALEATE [Concomitant]
  3. XIMOVANE (ZOPICLONE) [Concomitant]

REACTIONS (4)
  - DRUG INTERACTION [None]
  - DYSKINESIA [None]
  - SPEECH DISORDER [None]
  - TARDIVE DYSKINESIA [None]
